FAERS Safety Report 17528254 (Version 1)
Quarter: 2020Q1

REPORT INFORMATION
  Report Type: Report from Study
  Country: US (occurrence: US)
  Receive Date: 20200311
  Receipt Date: 20200311
  Transmission Date: 20200409
  Serious: No
  Sender: FDA-Public Use
  Company Number: NVSC2020US068699

PATIENT
  Sex: Female

DRUGS (1)
  1. COSENTYX [Suspect]
     Active Substance: SECUKINUMAB
     Indication: PSORIATIC ARTHROPATHY
     Dosage: UNK (ONCE WEEKLY FOR 5 WEEKS, THEN ONCE)
     Route: 058
     Dates: start: 20190610

REACTIONS (3)
  - Infection [Unknown]
  - Headache [Unknown]
  - Vision blurred [Unknown]
